FAERS Safety Report 5048179-5 (Version None)
Quarter: 2006Q3

REPORT INFORMATION
  Report Type: 
  Country: None (occurrence: None)
  Receive Date: 20060711
  Receipt Date: 20060626
  Transmission Date: 20061208
  Serious: Yes (Other)
  Sender: FDA-Public Use
  Company Number: FR-ROCHE-453164

PATIENT
  Age: 36 Year
  Sex: Female

DRUGS (1)
  1. RIVOTRIL [Suspect]
     Route: 065

REACTIONS (1)
  - HYPERPROLACTINAEMIA [None]
